FAERS Safety Report 6131135-3 (Version None)
Quarter: 2009Q1

REPORT INFORMATION
  Report Type: 
  Country: None (occurrence: None)
  Receive Date: 20090325
  Receipt Date: 20090316
  Transmission Date: 20090719
  Serious: Yes (Other)
  Sender: FDA-Public Use
  Company Number: US-PFIZER INC-2009187143

PATIENT
  Age: 19 Year
  Sex: Male

DRUGS (2)
  1. XANAX [Suspect]
     Dosage: UNK
     Dates: start: 20090214, end: 20090201
  2. OXYMORPHONE [Suspect]
     Dosage: UNK
     Dates: start: 20090214, end: 20090201

REACTIONS (1)
  - DRUG ABUSE [None]
